FAERS Safety Report 11074755 (Version 1)
Quarter: 2015Q2

REPORT INFORMATION
  Report Type: Spontaneous
  Country: US (occurrence: None)
  Receive Date: 20150428
  Receipt Date: 20150428
  Transmission Date: 20150821
  Serious: Yes (Other)
  Sender: FDA-Public Use
  Company Number: None

PATIENT
  Age: 72 Year
  Sex: Male
  Weight: 86.18 kg

DRUGS (5)
  1. CENTRUM SILVER 50+ [Concomitant]
  2. ASPIRIN. [Concomitant]
     Active Substance: ASPIRIN
  3. ENALAPRIL [Concomitant]
     Active Substance: ENALAPRIL
  4. ALFUSOCIN [Concomitant]
  5. CIPROFLOXACIN 500MG WEST-WARD [Suspect]
     Active Substance: CIPROFLOXACIN
     Indication: URINARY TRACT INFECTION
     Dosage: 1 PILL
     Route: 048

REACTIONS (4)
  - Peripheral sensory neuropathy [None]
  - Mobility decreased [None]
  - Documented hypersensitivity to administered product [None]
  - Gait disturbance [None]
